FAERS Safety Report 10971344 (Version 1)
Quarter: 2015Q1

REPORT INFORMATION
  Report Type: Spontaneous
  Country: US (occurrence: None)
  Receive Date: 20150330
  Receipt Date: 20150330
  Transmission Date: 20150721
  Serious: No
  Sender: FDA-Public Use
  Company Number: None

PATIENT
  Age: 78 Year
  Sex: Female

DRUGS (14)
  1. OMEPRAZOLE. [Concomitant]
     Active Substance: OMEPRAZOLE
  2. MULTIVIT [Concomitant]
     Active Substance: VITAMINS
  3. GLUCOSOMINE/CONDROITEN [Concomitant]
  4. CHLORTHALIDONE. [Concomitant]
     Active Substance: CHLORTHALIDONE
  5. CALCIUM WITH D [Concomitant]
     Active Substance: CALCIUM\VITAMIN D
  6. VALTORIN GEL [Concomitant]
  7. LEVOFLOXACIN 500 MG [Suspect]
     Active Substance: LEVOFLOXACIN
     Indication: SINUSITIS
     Dosage: 1 TABLET
     Route: 048
     Dates: start: 20150314, end: 20150320
  8. FLONASE [Concomitant]
     Active Substance: FLUTICASONE PROPIONATE
  9. VIT. C [Concomitant]
  10. LO DOSE ASA [Concomitant]
  11. SLO-MAG [Concomitant]
  12. KRILL OIL [Concomitant]
     Active Substance: DIETARY SUPPLEMENT
  13. LEVOTHYROXIN [Concomitant]
     Active Substance: LEVOTHYROXINE
  14. SPIRNOLACTONE [Concomitant]

REACTIONS (1)
  - Pain in extremity [None]

NARRATIVE: CASE EVENT DATE: 20150314
